FAERS Safety Report 21482069 (Version 1)
Quarter: 2022Q4

REPORT INFORMATION
  Report Type: Spontaneous
  Country: IN (occurrence: IN)
  Receive Date: 20221020
  Receipt Date: 20221020
  Transmission Date: 20230113
  Serious: Yes (Life-Threatening, Hospitalization, Other)
  Sender: FDA-Public Use
  Company Number: IN-SUN PHARMACEUTICAL INDUSTRIES LTD-2022R1-359769

PATIENT
  Age: 45 Year
  Sex: Male
  Weight: 65 kg

DRUGS (9)
  1. ONDANSETRON [Suspect]
     Active Substance: ONDANSETRON
     Indication: Premedication
     Dosage: 4 MILLIGRAM
     Route: 065
  2. SEVOFLURANE [Suspect]
     Active Substance: SEVOFLURANE
     Indication: Anaesthesia
     Dosage: 2% IN 50% AIR/OXYGEN MIXTURE
     Route: 065
  3. SUCCINYLCHOLINE [Suspect]
     Active Substance: SUCCINYLCHOLINE
     Indication: Neuromuscular blockade
     Dosage: 100 MILLIGRAM
     Route: 042
  4. ATRACURIUM [Concomitant]
     Active Substance: ATRACURIUM
     Indication: Anaesthesia
     Dosage: 10 MILLIGRAM
     Route: 065
  5. FENTANYL [Concomitant]
     Active Substance: FENTANYL
     Indication: Premedication
     Dosage: 100 MICROGRAM
     Route: 065
  6. FENTANYL [Concomitant]
     Active Substance: FENTANYL
     Indication: Anaesthesia
     Dosage: 40 MICROGRAM INTERMITTENT BOLUSES
     Route: 065
  7. LIDOCAINE [Concomitant]
     Active Substance: LIDOCAINE
     Indication: Premedication
     Dosage: 90 MILLIGRAM
     Route: 065
  8. MIDAZOLAM [Concomitant]
     Active Substance: MIDAZOLAM
     Indication: Premedication
     Dosage: 1 MILLIGRAM
     Route: 042
  9. PROPOFOL [Concomitant]
     Active Substance: PROPOFOL
     Indication: Anaesthesia
     Dosage: 140 MILLIGRAM
     Route: 065

REACTIONS (6)
  - Torsade de pointes [Unknown]
  - Ventricular fibrillation [Unknown]
  - Electrocardiogram ST segment elevation [Unknown]
  - Cardiac arrest [Unknown]
  - Long QT syndrome congenital [Unknown]
  - Ventricular tachyarrhythmia [Unknown]
